FAERS Safety Report 19974480 (Version 10)
Quarter: 2024Q3

REPORT INFORMATION
  Report Type: Spontaneous
  Country: US (occurrence: US)
  Receive Date: 20211020
  Receipt Date: 20240910
  Transmission Date: 20241017
  Serious: Yes (Hospitalization, Other)
  Sender: PFIZER
  Company Number: US-PFIZER INC-202101342975

PATIENT
  Age: 84 Year
  Sex: Male
  Weight: 72.562 kg

DRUGS (4)
  1. VYNDAMAX [Suspect]
     Active Substance: TAFAMIDIS
     Indication: Cardiac amyloidosis
     Dosage: 1 TAB BY MOUTH DAILY
     Route: 048
     Dates: start: 20210625
  2. VYNDAMAX [Suspect]
     Active Substance: TAFAMIDIS
     Indication: Cardiomyopathy
  3. VYNDAMAX [Suspect]
     Active Substance: TAFAMIDIS
     Indication: Hypertrophic cardiomyopathy
  4. ELIQUIS [Concomitant]
     Active Substance: APIXABAN
     Indication: Atrial fibrillation
     Dosage: 2.5 MG, 2X/DAY
     Route: 048

REACTIONS (11)
  - Peripheral swelling [Recovering/Resolving]
  - Cardiac failure congestive [Unknown]
  - Cardiac failure acute [Unknown]
  - Acute kidney injury [Unknown]
  - Conjunctival haemorrhage [Unknown]
  - Haematoma [Unknown]
  - Anaemia [Unknown]
  - Knee operation [Unknown]
  - Atrial appendage closure [Unknown]
  - Cardiac pacemaker insertion [Unknown]
  - Hypoacusis [Unknown]

NARRATIVE: CASE EVENT DATE: 20230201
